FAERS Safety Report 4760394-4 (Version None)
Quarter: 2005Q3

REPORT INFORMATION
  Report Type: 
  Country: None (occurrence: None)
  Receive Date: 20050902
  Receipt Date: 20050815
  Transmission Date: 20060218
  Serious: Yes (Hospitalization)
  Sender: FDA-Public Use
  Company Number: EE-GLAXOSMITHKLINE-B0390855A

PATIENT
  Age: 44 Year
  Sex: Male
  Weight: 72 kg

DRUGS (2)
  1. TRIZIVIR [Suspect]
     Indication: HIV INFECTION
     Dosage: 1TAB TWICE PER DAY
     Route: 048
     Dates: start: 20020611
  2. EFAVIRENZ [Suspect]
     Indication: HIV INFECTION
     Dosage: 600MG PER DAY
     Route: 048
     Dates: start: 20020611, end: 20030519

REACTIONS (3)
  - ARTERIAL STENOSIS [None]
  - CHEST PAIN [None]
  - MYOCARDIAL INFARCTION [None]
